FAERS Safety Report 9725784 (Version 1)
Quarter: 2013Q4

REPORT INFORMATION
  Report Type: Spontaneous
  Country: JP (occurrence: JP)
  Receive Date: 20131203
  Receipt Date: 20131203
  Transmission Date: 20140711
  Serious: Yes (Other)
  Sender: FDA-Public Use
  Company Number: JP-ASTELLAS-2013JP013197

PATIENT
  Age: 72 Year
  Sex: Male

DRUGS (1)
  1. BETANIS [Suspect]
     Route: 048

REACTIONS (1)
  - Intraocular pressure increased [Unknown]
